FAERS Safety Report 4674511-8 (Version None)
Quarter: 2005Q2

REPORT INFORMATION
  Report Type: 
  Country: None (occurrence: None)
  Receive Date: 20050526
  Receipt Date: 20050418
  Transmission Date: 20051028
  Serious: Yes (Other)
  Sender: FDA-Public Use
  Company Number: PHRM2005FR01324

PATIENT
  Age: 55 Year
  Sex: Female

DRUGS (2)
  1. BISPHOSPHONATES [Suspect]
     Indication: METASTASES TO BONE
     Route: 048
  2. ZOMETA [Suspect]
     Indication: METASTASES TO BONE
     Dosage: 4 MG, QMO
     Route: 042
     Dates: start: 20030401

REACTIONS (1)
  - ASEPTIC NECROSIS BONE [None]
